FAERS Safety Report 9066573 (Version 2)
Quarter: 2013Q4

REPORT INFORMATION
  Report Type: Report from Study
  Country: CA (occurrence: CA)
  Receive Date: 20130214
  Receipt Date: 20131112
  Transmission Date: 20140711
  Serious: Yes (Death)
  Sender: FDA-Public Use
  Company Number: CA-UCBSA-077851

PATIENT
  Age: 88 Year
  Sex: Male

DRUGS (14)
  1. CIMZIA [Suspect]
     Indication: RHEUMATOID ARTHRITIS
     Route: 058
     Dates: start: 20110401, end: 201212
  2. TOLOXIN [Concomitant]
     Indication: CARDIAC FAILURE CONGESTIVE
     Dates: start: 1996, end: 201212
  3. ALENDRONATE [Concomitant]
     Indication: OSTEOPOROSIS
     Dosage: DOSE FREQUENCY CODE: QS
     Dates: start: 20110318, end: 201212
  4. CARBOCAL D [Concomitant]
     Indication: NUTRITIONAL SUPPLEMENTATION
     Dosage: DOSE : 400 MG/500 MG
     Dates: start: 20061107, end: 201212
  5. TRENTAL [Concomitant]
     Indication: PERIPHERAL ARTERIAL OCCLUSIVE DISEASE
     Dates: start: 20020325, end: 201212
  6. PMS-DOCUSATE SODIUM [Concomitant]
     Indication: CONSTIPATION
     Dates: start: 2005, end: 201212
  7. APO-PREDNISONE [Concomitant]
     Indication: RHEUMATOID ARTHRITIS
     Dates: start: 20100901, end: 201212
  8. SANDOZ BISOPROLOL [Concomitant]
     Indication: HYPERTENSION
     Dates: start: 20060126, end: 201212
  9. RAN-LISINOPRIL [Concomitant]
     Indication: HYPERTENSION
     Dates: start: 199612, end: 201212
  10. COUMADIN [Concomitant]
     Indication: ARRHYTHMIA
     Dosage: 2 MG AS REQUIRED
     Dates: start: 20071109, end: 201212
  11. COUMADIN [Concomitant]
     Indication: ARRHYTHMIA
     Dosage: 3 MG AS REQUIRED
     Dates: start: 20071109, end: 201212
  12. VESICARE [Concomitant]
     Indication: MICTURITION URGENCY
     Dates: start: 20110513, end: 201212
  13. PANTOLOC [Concomitant]
     Indication: PEPTIC ULCER
     Dates: start: 20060510, end: 201212
  14. FERROUS SULFATE [Concomitant]
     Indication: ANAEMIA
     Dates: start: 19990428, end: 201212

REACTIONS (1)
  - Death [Fatal]
